FAERS Safety Report 11012368 (Version 1)
Quarter: 2015Q1

REPORT INFORMATION
  Report Type: Spontaneous
  Country: US (occurrence: None)
  Receive Date: 20150331
  Receipt Date: 20150331
  Transmission Date: 20150721
  Serious: Yes (Hospitalization)
  Sender: FDA-Public Use
  Company Number: PHEH2012US015264

PATIENT
  Age: 81 Year
  Sex: Female

DRUGS (5)
  1. METOPROLOL (METOPROLOL) [Concomitant]
     Active Substance: METOPROLOL
  2. METFORMIN [Concomitant]
     Active Substance: METFORMIN HYDROCHLORIDE
  3. GLIPIZIDE (GLIPIZIDE) [Concomitant]
     Active Substance: GLIPIZIDE
  4. LISINOPRIL (LISINOPRIL) [Concomitant]
     Active Substance: LISINOPRIL
  5. EXELON PATCH [Suspect]
     Active Substance: RIVASTIGMINE
     Dosage: 9.5 MG, DAILY, TRANSDERMAL
     Route: 062

REACTIONS (6)
  - Nasopharyngitis [None]
  - Dizziness [None]
  - Urinary tract infection [None]
  - Nausea [None]
  - Headache [None]
  - Diarrhoea [None]
